FAERS Safety Report 25871401 (Version 1)
Quarter: 2025Q4

REPORT INFORMATION
  Report Type: Report from Study
  Country: EU (occurrence: EU)
  Receive Date: 20251001
  Receipt Date: 20251001
  Transmission Date: 20260117
  Serious: Yes (Other)
  Sender: UCB
  Company Number: EU-UCBSA-2025029342

PATIENT
  Age: 53 Year
  Sex: Female
  Weight: 79 kg

DRUGS (7)
  1. BIMEKIZUMAB [Suspect]
     Active Substance: BIMEKIZUMAB
     Indication: Axial spondyloarthritis
     Dosage: 160 MILLIGRAM, MONTHLY (QM)
     Route: 058
     Dates: start: 20250215
  2. LEVOTHYROXINE [Concomitant]
     Active Substance: LEVOTHYROXINE
     Indication: Autoimmune thyroiditis
     Dosage: UNK
     Dates: start: 1998
  3. ATORVASTATIN\EZETIMIBE [Concomitant]
     Active Substance: ATORVASTATIN\EZETIMIBE
     Indication: Hypercholesterolaemia
     Dosage: 10 MILLIGRAM
     Dates: start: 1998
  4. OMEPRAZOLE [Concomitant]
     Active Substance: OMEPRAZOLE
     Indication: Prophylaxis
     Dosage: 20 MILLIGRAM, ONCE DAILY (QD)
     Dates: start: 20241120
  5. ETORICOXIB [Concomitant]
     Active Substance: ETORICOXIB
     Indication: Axial spondyloarthritis
     Dosage: 120 MILLIGRAM, ONCE DAILY (QD)
     Dates: start: 20241120, end: 20250414
  6. ETORICOXIB [Concomitant]
     Active Substance: ETORICOXIB
     Dosage: 120 MILLIGRAM, ONCE DAILY (QD)
     Dates: start: 20250206
  7. AMITRIPTYLINE [Concomitant]
     Active Substance: AMITRIPTYLINE
     Indication: Analgesic therapy

REACTIONS (5)
  - Inflammatory bowel disease [Unknown]
  - Wrist fracture [Recovered/Resolved]
  - Localised infection [Recovered/Resolved]
  - Psoriasis [Unknown]
  - Dactylitis [Unknown]

NARRATIVE: CASE EVENT DATE: 20250424
